FAERS Safety Report 12802883 (Version 2)
Quarter: 2019Q4

REPORT INFORMATION
  Report Type: Spontaneous
  Country: US (occurrence: US)
  Receive Date: 20161003
  Receipt Date: 20191019
  Transmission Date: 20200122
  Serious: No
  Sender: FDA-Public Use
  Company Number: US-TEVA-689726USA

PATIENT
  Sex: Female

DRUGS (1)
  1. COPAXONE [Suspect]
     Active Substance: GLATIRAMER ACETATE
     Indication: MULTIPLE SCLEROSIS
     Dosage: DOSAGE FORM STRENGTH UNKNOWN
     Route: 058

REACTIONS (3)
  - Exposure via breast milk [Unknown]
  - Maternal exposure during pregnancy [Unknown]
  - Normal newborn [Unknown]
